FAERS Safety Report 6231767-8 (Version None)
Quarter: 2009Q2

REPORT INFORMATION
  Report Type: 
  Country: None (occurrence: None)
  Receive Date: 20090616
  Receipt Date: 20090608
  Transmission Date: 20091009
  Serious: Yes (Other)
  Sender: FDA-Public Use
  Company Number: PHHY2009AT19613

PATIENT
  Age: 81 Year
  Sex: Female

DRUGS (5)
  1. CALCITONIN [Suspect]
     Indication: OSTEOPOROSIS
     Dosage: FOR TWO WEEKS
     Route: 045
  2. MARCUMAR [Concomitant]
  3. RENIPRIL [Concomitant]
  4. TRAMADOL HCL [Concomitant]
     Dosage: 1 DF, BID
     Route: 048
  5. TRAMADOL HCL [Concomitant]
     Dosage: 1 DF, QD
     Route: 048

REACTIONS (4)
  - ATRIAL FIBRILLATION [None]
  - DEMENTIA ALZHEIMER'S TYPE [None]
  - DISORIENTATION [None]
  - MEMORY IMPAIRMENT [None]
